FAERS Safety Report 5798766-1 (Version None)
Quarter: 2008Q3

REPORT INFORMATION
  Report Type: 
  Country: None (occurrence: None)
  Receive Date: 20080702
  Receipt Date: 20080623
  Transmission Date: 20090109
  Serious: Yes (Death, Hospitalization)
  Sender: FDA-Public Use
  Company Number: DK-ROCHE-553113

PATIENT

DRUGS (3)
  1. CAPECITABINE [Suspect]
     Route: 065
     Dates: start: 20071019, end: 20080305
  2. BEVACIZUMAB [Suspect]
     Route: 065
     Dates: start: 20071019, end: 20080305
  3. OXALIPLATIN [Suspect]
     Route: 065

REACTIONS (5)
  - ALANINE AMINOTRANSFERASE INCREASED [None]
  - BLOOD AMYLASE INCREASED [None]
  - BLOOD BILIRUBIN INCREASED [None]
  - DISEASE PROGRESSION [None]
  - HEPATIC FAILURE [None]
